FAERS Safety Report 23853307 (Version 3)
Quarter: 2024Q2

REPORT INFORMATION
  Report Type: Spontaneous
  Country: US (occurrence: US)
  Receive Date: 20240514
  Receipt Date: 20240614
  Transmission Date: 20240716
  Serious: No
  Sender: FDA-Public Use
  Company Number: US-PFIZER INC-202400105149

PATIENT
  Age: 12 Year
  Sex: Male

DRUGS (2)
  1. GENOTROPIN [Suspect]
     Active Substance: SOMATROPIN
     Indication: Growth hormone deficiency
     Dosage: ALTERNATING 1.0MG AND 1.2MG DAILY
  2. GENOTROPIN [Suspect]
     Active Substance: SOMATROPIN
     Dosage: ALTERNATING 1.0MG AND 1.2MG DAILY

REACTIONS (3)
  - Device use error [Unknown]
  - Device breakage [Unknown]
  - Drug dose omission by device [Unknown]
